FAERS Safety Report 24016009 (Version 1)
Quarter: 2024Q2

REPORT INFORMATION
  Report Type: Spontaneous
  Country: GB (occurrence: GB)
  Receive Date: 20240626
  Receipt Date: 20240626
  Transmission Date: 20240716
  Serious: Yes (Disabling)
  Sender: FDA-Public Use
  Company Number: GB-Eisai-EC-2024-168673

PATIENT
  Age: 36 Year
  Sex: Female
  Weight: 55.8 kg

DRUGS (1)
  1. LENVATINIB [Suspect]
     Active Substance: LENVATINIB
     Indication: Adenoid cystic carcinoma
     Dosage: FREQUENCY UNKNOWN
     Route: 048
     Dates: start: 20240513, end: 20240606

REACTIONS (4)
  - Fatigue [Unknown]
  - Oropharyngeal pain [Unknown]
  - Dysphagia [Unknown]
  - Haematuria [Unknown]

NARRATIVE: CASE EVENT DATE: 20240521
